FAERS Safety Report 11052342 (Version 1)
Quarter: 2015Q2

REPORT INFORMATION
  Report Type: Spontaneous
  Country: VN (occurrence: VN)
  Receive Date: 20150421
  Receipt Date: 20150421
  Transmission Date: 20150821
  Serious: Yes (Death, Hospitalization, Other)
  Sender: FDA-Public Use
  Company Number: PHHY2015VN045718

PATIENT
  Sex: Female

DRUGS (1)
  1. GLIVEC [Suspect]
     Active Substance: IMATINIB MESYLATE
     Indication: CHRONIC MYELOID LEUKAEMIA
     Dosage: 400 MG, QD (DAILY)
     Route: 065

REACTIONS (9)
  - Cerebral haemorrhage [Fatal]
  - Pneumonitis [Not Recovered/Not Resolved]
  - Headache [Fatal]
  - Pyrexia [Not Recovered/Not Resolved]
  - Hemiparesis [Fatal]
  - Seizure [Not Recovered/Not Resolved]
  - Loss of consciousness [Fatal]
  - Coma [Fatal]
  - Chronic myeloid leukaemia transformation [Unknown]

NARRATIVE: CASE EVENT DATE: 20150402
